FAERS Safety Report 10498316 (Version 1)
Quarter: 2014Q4

REPORT INFORMATION
  Report Type: Spontaneous
  Country: US (occurrence: US)
  Receive Date: 20141006
  Receipt Date: 20141006
  Transmission Date: 20150528
  Serious: Yes (Other)
  Sender: FDA-Public Use
  Company Number: PHHY2014US127803

PATIENT
  Age: 32 Year
  Sex: Male

DRUGS (6)
  1. METHYLPHENIDATE [Suspect]
     Active Substance: METHYLPHENIDATE
  2. ZOLPIDEM [Suspect]
     Active Substance: ZOLPIDEM\ZOLPIDEM TARTRATE
  3. TOPIRAMATE. [Suspect]
     Active Substance: TOPIRAMATE
  4. BENZTROPINE [Suspect]
     Active Substance: BENZTROPINE
  5. HALOPERIDOL. [Suspect]
     Active Substance: HALOPERIDOL
  6. CITALOPRAM [Suspect]
     Active Substance: CITALOPRAM HYDROBROMIDE

REACTIONS (1)
  - Substance abuse [Unknown]
